FAERS Safety Report 18316238 (Version 1)
Quarter: 2020Q3

REPORT INFORMATION
  Report Type: Report from Study
  Country: AT (occurrence: AT)
  Receive Date: 20200927
  Receipt Date: 20200927
  Transmission Date: 20201103
  Serious: Yes (Other)
  Sender: FDA-Public Use
  Company Number: AT-ASTRAZENECA-2020SF17535

PATIENT
  Sex: Female
  Weight: 80.4 kg

DRUGS (36)
  1. PERTUZUMAB. [Suspect]
     Active Substance: PERTUZUMAB
     Indication: BREAST CANCER METASTATIC
     Dosage: MOST RECENT DOSE PRIOR TO THE EVENT WORSENING OF BRAIN METASTASES: 17/MAR/2017 MOST RECENT DOSE P...
     Route: 065
     Dates: start: 20170224, end: 20170224
  2. PARACETAMOL [Concomitant]
     Active Substance: ACETAMINOPHEN
     Route: 065
     Dates: start: 20200506
  3. LOVENOX [Concomitant]
     Active Substance: ENOXAPARIN SODIUM
     Route: 065
     Dates: start: 20170224, end: 20171130
  4. FORTECORTIN [DEXAMETHASONE] [Concomitant]
     Active Substance: DEXAMETHASONE
     Dosage: ONGOING = NOT CHECKED
     Route: 065
     Dates: start: 20171007, end: 20171008
  5. CAPECITABINE. [Suspect]
     Active Substance: CAPECITABINE
     Indication: BREAST CANCER
     Dosage: MOST RECENT DOSE PRIOR TO THE EVENT LYMPH NODE METASTATIS AXILLA AND PORT A CATH INFECTION: 08/JA...
     Route: 048
     Dates: start: 20191002, end: 20200107
  6. XGEVA [Concomitant]
     Active Substance: DENOSUMAB
     Route: 065
     Dates: start: 20170202
  7. KALIORAL [CITRIC ACID;POTASSIUM BICARBONATE;POTASSIUM CITRATE] [Concomitant]
     Route: 065
     Dates: start: 20200427, end: 20200428
  8. TAZONAM [Concomitant]
     Active Substance: TAZOBACTAM
     Indication: STREPTOCOCCAL SEPSIS
     Route: 065
     Dates: start: 20200423, end: 20200504
  9. FORTECORTIN [DEXAMETHASONE] [Concomitant]
     Active Substance: DEXAMETHASONE
     Indication: BRAIN OEDEMA
     Route: 065
     Dates: start: 20200422, end: 20200505
  10. EMEND [Concomitant]
     Active Substance: APREPITANT
     Route: 065
     Dates: start: 20200428, end: 20200430
  11. FENTANYL. [Concomitant]
     Active Substance: FENTANYL
     Route: 065
     Dates: start: 20200515
  12. PANTOPRAZOL [PANTOPRAZOLE] [Concomitant]
     Active Substance: PANTOPRAZOLE
     Route: 065
     Dates: start: 20200506, end: 20200519
  13. TRASTUZUMAB. [Suspect]
     Active Substance: TRASTUZUMAB
     Indication: BREAST CANCER METASTATIC
     Dosage: MOST RECENT DOSE PRIOR TO THE EVENTS: 10/AUG/2017
     Route: 042
     Dates: start: 20170224, end: 20170224
  14. LEUKICHTAN [COD?LIVER OIL;ICHTHAMMOL] [Concomitant]
     Route: 065
     Dates: start: 20200430, end: 20200515
  15. FUROSEMID [FUROSEMIDE] [Concomitant]
     Active Substance: FUROSEMIDE
     Route: 065
     Dates: start: 20170810
  16. OLEOVIT [RETINOL] [Concomitant]
     Route: 065
     Dates: start: 20170329
  17. PREGABALIN. [Concomitant]
     Active Substance: PREGABALIN
     Route: 065
     Dates: start: 20190821
  18. OLIVE OIL [Concomitant]
     Active Substance: OLIVE OIL
     Indication: PARONYCHIA
     Route: 065
     Dates: start: 20191002, end: 20200512
  19. VITAMINS WITH MINERALS [Concomitant]
     Active Substance: MINERALS\VITAMINS
     Dosage: ONGOING = CHECKED
     Route: 065
     Dates: start: 20170203
  20. LAPATINIB [Suspect]
     Active Substance: LAPATINIB
     Indication: BREAST CANCER
     Dosage: MOST RECENT DOSE PRIOR TO THE EVENT LYMPH NODE METASTATIS AXILLA AND PORT A CATH INFECTION: 08/JA...
     Route: 048
     Dates: start: 20191002, end: 20200107
  21. TRASTUZUMAB EMTANSINE [Suspect]
     Active Substance: ADO-TRASTUZUMAB EMTANSINE
     Indication: BREAST CANCER
     Route: 042
     Dates: start: 20190306, end: 20190909
  22. PANTOPRAZOL [PANTOPRAZOLE] [Concomitant]
     Active Substance: PANTOPRAZOLE
     Route: 065
     Dates: start: 20170722, end: 20180327
  23. TAVANIC [Concomitant]
     Active Substance: LEVOFLOXACIN
     Route: 065
     Dates: start: 20200506, end: 20200512
  24. DOCETAXEL. [Suspect]
     Active Substance: DOCETAXEL
     Indication: BREAST CANCER METASTATIC
     Dosage: MOST RECENT DOSE PRIOR TO THE EVENTS: 09/JUN/2017
     Route: 065
     Dates: start: 20170224, end: 20170317
  25. FUROSEMID [FUROSEMIDE] [Concomitant]
     Active Substance: FUROSEMIDE
     Dosage: ONGOING = NOT CHECKED
     Dates: start: 20170810, end: 20171213
  26. BETAISODONA [Concomitant]
     Active Substance: POVIDONE-IODINE
     Indication: SKIN FISSURES
     Dosage: ONGOING NOT CHECKED
     Route: 065
     Dates: start: 20200430, end: 20200515
  27. KCL [Concomitant]
     Active Substance: POTASSIUM CHLORIDE
     Route: 065
     Dates: start: 20170429
  28. LIXIANA [Concomitant]
     Active Substance: EDOXABAN TOSYLATE
     Route: 065
     Dates: start: 20191120, end: 20200608
  29. NERIFORTE [Concomitant]
     Indication: SKIN FISSURES
     Route: 065
     Dates: start: 20200430, end: 20200515
  30. FULVESTRANT. [Suspect]
     Active Substance: FULVESTRANT
     Indication: BREAST CANCER
     Dosage: MOST RECENT DOSE PRIOR TO THE EVENT LYMPH NODE METASTATIS AXILLA AND PORT A CATH INFECTION: 16/NO...
     Route: 030
     Dates: start: 20171002, end: 20171115
  31. ZOFRAN [Concomitant]
     Active Substance: ONDANSETRON HYDROCHLORIDE
     Route: 065
     Dates: start: 20200506
  32. FORTECORTIN [DEXAMETHASONE] [Concomitant]
     Active Substance: DEXAMETHASONE
     Dates: start: 20171004, end: 20171006
  33. EUTHYROX [Concomitant]
     Active Substance: LEVOTHYROXINE SODIUM
     Route: 065
     Dates: start: 20170303
  34. NOVALGIN (METAMIZOLE SODIUM) [Concomitant]
     Active Substance: METAMIZOLE SODIUM
     Route: 065
     Dates: start: 20170329, end: 20180807
  35. VINORELBINE [Suspect]
     Active Substance: VINORELBINE TARTRATE
     Indication: BREAST CANCER
     Route: 042
     Dates: start: 20200422
  36. PASPERTIN [METOCLOPRAMIDE HYDROCHLORIDE] [Concomitant]
     Active Substance: METOCLOPRAMIDE HYDROCHLORIDE
     Route: 065
     Dates: start: 20200506

REACTIONS (3)
  - Metastases to lymph nodes [Not Recovered/Not Resolved]
  - Vascular device infection [Recovered/Resolved]
  - Metastases to central nervous system [Not Recovered/Not Resolved]

NARRATIVE: CASE EVENT DATE: 20170921
